FAERS Safety Report 9464215 (Version 1)
Quarter: 2013Q3

REPORT INFORMATION
  Report Type: Spontaneous
  Country: US (occurrence: US)
  Receive Date: 20130819
  Receipt Date: 20130819
  Transmission Date: 20140515
  Serious: Yes (Hospitalization)
  Sender: FDA-Public Use
  Company Number: US-BAYER-2013-099561

PATIENT
  Age: 47 Year
  Sex: Female

DRUGS (2)
  1. YAZ [Suspect]
  2. AMOXICILLIN [Concomitant]
     Dosage: 500 MG, 1 CAPSULE THREE TIMES DAILY FOR 7 TO 10 DAYS AS DIRECTED
     Dates: start: 20070204

REACTIONS (2)
  - Pulmonary embolism [None]
  - Deep vein thrombosis [None]
